FAERS Safety Report 13440537 (Version 1)
Quarter: 2017Q2

REPORT INFORMATION
  Report Type: Spontaneous
  Country: US (occurrence: US)
  Receive Date: 20170413
  Receipt Date: 20170413
  Transmission Date: 20170830
  Serious: Yes (Hospitalization, Other)
  Sender: FDA-Public Use
  Company Number: US-ASTELLAS-2016US048198

PATIENT
  Age: 68 Year
  Sex: Male

DRUGS (5)
  1. RAPAMUNE [Suspect]
     Active Substance: SIROLIMUS
     Route: 065
     Dates: start: 201412
  2. PROGRAF [Suspect]
     Active Substance: TACROLIMUS\TACROLIMUS ANHYDROUS
     Dosage: 4 MG (1MG + 3MG), ONCE DAILY
     Route: 065
     Dates: start: 201412
  3. AMLODIPINE [Suspect]
     Active Substance: AMLODIPINE BESYLATE
     Indication: BLOOD PRESSURE ABNORMAL
     Route: 065
     Dates: start: 2013
  4. PROGRAF [Suspect]
     Active Substance: TACROLIMUS\TACROLIMUS ANHYDROUS
     Indication: LUNG TRANSPLANT
     Dosage: 3 MG (2MG + 1MG), ONCE DAILY
     Route: 065
     Dates: start: 200701, end: 201412
  5. RAPAMUNE [Suspect]
     Active Substance: SIROLIMUS
     Indication: LUNG TRANSPLANT
     Route: 065
     Dates: start: 200708, end: 201412

REACTIONS (6)
  - Squamous cell carcinoma of skin [Recovering/Resolving]
  - Off label use [Unknown]
  - Bladder cancer [Recovering/Resolving]
  - Metastatic lymphoma [Recovering/Resolving]
  - Basal cell carcinoma [Recovering/Resolving]
  - Metastatic lymphoma [Recovering/Resolving]

NARRATIVE: CASE EVENT DATE: 201401
